FAERS Safety Report 18981708 (Version 1)
Quarter: 2021Q1

REPORT INFORMATION
  Report Type: Spontaneous
  Country: KR (occurrence: KR)
  Receive Date: 20210308
  Receipt Date: 20210308
  Transmission Date: 20210420
  Serious: Yes (Hospitalization)
  Sender: FDA-Public Use
  Company Number: KR-SA-2021SA065325

PATIENT
  Sex: Female

DRUGS (1)
  1. DOXYLAMINE SUCCINATE. [Suspect]
     Active Substance: DOXYLAMINE SUCCINATE
     Dosage: MORE THAN 13MG/KG
     Route: 048

REACTIONS (2)
  - Overdose [Not Recovered/Not Resolved]
  - Blood creatinine increased [Not Recovered/Not Resolved]
